FAERS Safety Report 16388751 (Version 1)
Quarter: 2019Q2

REPORT INFORMATION
  Report Type: Spontaneous
  Country: US (occurrence: US)
  Receive Date: 20190604
  Receipt Date: 20190604
  Transmission Date: 20190711
  Serious: No
  Sender: FDA-Public Use
  Company Number: US-GLAXOSMITHKLINE-US2019096975

PATIENT
  Age: 77 Year
  Sex: Female

DRUGS (2)
  1. ABREVA [Suspect]
     Active Substance: DOCOSANOL
     Dosage: 3 TIMES A DAY OR MAYBE MORE 5 TO 6 TIMES A DAY
     Route: 061
     Dates: start: 20190512, end: 20190517
  2. ABREVA [Suspect]
     Active Substance: DOCOSANOL
     Indication: ORAL HERPES
     Dosage: 3 TIMES A DAY OR MAYBE MORE 5 TO 6 TIMES A DAY
     Route: 061
     Dates: start: 20190510, end: 20190512

REACTIONS (6)
  - Inappropriate schedule of product administration [Unknown]
  - Wrong technique in product usage process [Unknown]
  - Condition aggravated [Unknown]
  - Oral herpes [Unknown]
  - Erythema [Unknown]
  - Incorrect product administration duration [Unknown]
